FAERS Safety Report 8089893 (Version 4)
Quarter: 2012Q4

REPORT INFORMATION
  Report Type: Report from Study
  Country: ES (occurrence: ES)
  Receive Date: 20110815
  Receipt Date: 20121112
  Transmission Date: 20130627
  Serious: Yes (Life-Threatening, Hospitalization)
  Sender: FDA-Public Use
  Company Number: ES-ROCHE-795268

PATIENT
  Age: 73 Year
  Sex: Female
  Weight: 62 kg

DRUGS (26)
  1. MYCOPHENOLATE MOFETIL [Suspect]
     Indication: ANTI-NEUTROPHIL CYTOPLASMIC ANTIBODY POSITIVE VASCULITIS
     Route: 048
  2. MYCOPHENOLATE MOFETIL [Suspect]
     Route: 048
  3. MYCOPHENOLATE MOFETIL [Suspect]
     Route: 048
  4. MYCOPHENOLATE MOFETIL [Suspect]
     Route: 048
     Dates: start: 20110720, end: 20110810
  5. ALENDRONATE SODIUM [Concomitant]
     Route: 065
  6. PREDNISONE [Concomitant]
     Route: 065
  7. PREDNISONE [Concomitant]
     Route: 065
  8. PREDNISONE [Concomitant]
     Route: 065
  9. PREDNISONE [Concomitant]
     Route: 065
  10. PREDNISONE [Concomitant]
     Route: 065
  11. CO-TRIMOXAZOLE [Concomitant]
     Dosage: DOSE: 800/160MG
     Route: 065
  12. NITROGLYCERIN PATCH [Concomitant]
     Route: 062
  13. OMEPRAZOLE [Concomitant]
     Route: 065
  14. FUROSEMIDE [Concomitant]
     Route: 065
  15. CLOPIDOGREL [Concomitant]
     Route: 065
  16. BISOPROLOL [Concomitant]
     Route: 065
  17. BISOPROLOL [Concomitant]
     Route: 065
  18. ENALAPRIL [Concomitant]
     Route: 065
  19. ASPIRIN [Concomitant]
     Route: 065
  20. PRAVASTATIN [Concomitant]
     Route: 065
  21. CALCIUM/VITAMIN D [Concomitant]
     Route: 065
  22. AZATHIOPRINE [Concomitant]
     Route: 065
  23. AZATHIOPRINE [Concomitant]
     Route: 065
  24. CITALOPRAM [Concomitant]
     Route: 065
  25. LORAZEPAM [Concomitant]
     Route: 065
  26. AMLODIPINE [Concomitant]
     Route: 065

REACTIONS (8)
  - Pulmonary embolism [Not Recovered/Not Resolved]
  - Gastrointestinal haemorrhage [Recovered/Resolved]
  - Pyrexia [Recovered/Resolved]
  - Cytomegalovirus infection [Recovered/Resolved]
  - Urinary tract infection enterococcal [Recovered/Resolved]
  - Urinary tract infection [Recovered/Resolved]
  - Lung infiltration [Recovered/Resolved]
  - Abdominal pain [Unknown]
